FAERS Safety Report 8419483 (Version 3)
Quarter: 2013Q2

REPORT INFORMATION
  Report Type: Report from Study
  Country: MX (occurrence: MX)
  Receive Date: 20120221
  Receipt Date: 20130418
  Transmission Date: 20140414
  Serious: Yes (Death)
  Sender: FDA-Public Use
  Company Number: PHHY2012MX014377

PATIENT
  Age: 58 Year
  Sex: Female

DRUGS (1)
  1. EXELON PATCH [Suspect]
     Indication: DEMENTIA ALZHEIMER^S TYPE
     Dosage: 4.6 MG/5CM2 DAILY
     Route: 062
     Dates: start: 201109

REACTIONS (1)
  - Myocardial infarction [Fatal]
